FAERS Safety Report 12796808 (Version 2)
Quarter: 2016Q4

REPORT INFORMATION
  Report Type: Spontaneous
  Country: US (occurrence: US)
  Receive Date: 20160929
  Receipt Date: 20161013
  Transmission Date: 20170207
  Serious: No
  Sender: FDA-Public Use
  Company Number: US-TAKEDA-2016TUS016756

PATIENT
  Sex: Male

DRUGS (2)
  1. DEXILANT [Suspect]
     Active Substance: DEXLANSOPRAZOLE
     Indication: PRODUCT USED FOR UNKNOWN INDICATION
     Dosage: 60 MG, QD
     Route: 048
  2. PREVACID [Suspect]
     Active Substance: LANSOPRAZOLE
     Indication: PRODUCT USED FOR UNKNOWN INDICATION
     Dosage: 30 MG, UNK
     Route: 048

REACTIONS (6)
  - Arthralgia [Recovered/Resolved]
  - Wrong technique in product usage process [Unknown]
  - Nasopharyngitis [Recovered/Resolved]
  - Feeling jittery [Unknown]
  - Myalgia [Recovered/Resolved]
  - Palpitations [Unknown]
